FAERS Safety Report 8394601-6 (Version None)
Quarter: 2012Q2

REPORT INFORMATION
  Report Type: 
  Country: None (occurrence: None)
  Receive Date: 20120530
  Receipt Date: 20120511
  Transmission Date: 20120825
  Serious: No
  Sender: FDA-Public Use
  Company Number: US-BAYER-2012-050794

PATIENT
  Age: 41 Year
  Sex: Male

DRUGS (1)
  1. BETASERON [Suspect]
     Dosage: 0.25 MG, QOD
     Route: 058
     Dates: start: 20090101

REACTIONS (1)
  - DEPRESSED MOOD [None]
